FAERS Safety Report 17261446 (Version 1)
Quarter: 2020Q1

REPORT INFORMATION
  Report Type: Spontaneous
  Country: GB (occurrence: GB)
  Receive Date: 20200113
  Receipt Date: 20200113
  Transmission Date: 20200409
  Serious: Yes (Other)
  Sender: FDA-Public Use
  Company Number: GB-ACCORD-169124

PATIENT
  Age: 66 Year
  Sex: Female
  Weight: 84 kg

DRUGS (20)
  1. SPIRONOLACTONE. [Concomitant]
     Active Substance: SPIRONOLACTONE
     Dates: start: 20190906
  2. LOSARTAN. [Concomitant]
     Active Substance: LOSARTAN
     Dates: start: 20150915
  3. VAGIFEM [Concomitant]
     Active Substance: ESTRADIOL
     Dates: start: 20150323
  4. ISPAGHULA EXTRACT\PSYLLIUM [Concomitant]
     Active Substance: HERBALS\PLANTAGO OVATA SEED\PLANTAGO SEED
     Dosage: USE AS DIRECTED
     Dates: start: 20171030
  5. ZOPICLONE [Concomitant]
     Active Substance: ZOPICLONE
     Dosage: 1-2 AT NIGHT
     Dates: start: 20191212
  6. MONTELUKAST [Suspect]
     Active Substance: MONTELUKAST SODIUM
     Indication: ASTHMA
     Dates: start: 20191223
  7. COCODAMOL [Concomitant]
     Active Substance: ACETAMINOPHEN\CODEINE PHOSPHATE
     Dosage: TAKE 1 OR 2 4 TIMES/DAY AS NEEDED
     Dates: start: 20180918
  8. SIMVASTATIN. [Concomitant]
     Active Substance: SIMVASTATIN
     Dates: start: 20050323
  9. FUROSEMIDE. [Concomitant]
     Active Substance: FUROSEMIDE
     Dosage: EACH MORNING
     Dates: start: 20170406
  10. ALOGLIPTIN. [Concomitant]
     Active Substance: ALOGLIPTIN
     Dates: start: 20160513
  11. PARACETAMOL [Concomitant]
     Active Substance: ACETAMINOPHEN
     Dates: start: 20180320
  12. CETIRIZINE [Concomitant]
     Active Substance: CETIRIZINE HYDROCHLORIDE
     Dates: start: 20191212
  13. DULOXETINE. [Concomitant]
     Active Substance: DULOXETINE
     Dates: start: 20170907
  14. HUMALOG [Concomitant]
     Active Substance: INSULIN LISPRO
     Dosage: UP TO 15 MINUTES BE...
     Route: 058
     Dates: start: 20140724
  15. RANITIDINE. [Concomitant]
     Active Substance: RANITIDINE
     Dates: start: 20151222
  16. PREDNISOLONE. [Concomitant]
     Active Substance: PREDNISOLONE
     Dates: start: 20191212
  17. METFORMIN [Concomitant]
     Active Substance: METFORMIN HYDROCHLORIDE
     Dates: start: 20190617
  18. MONTELUKAST [Concomitant]
     Active Substance: MONTELUKAST SODIUM
     Dosage: AT NIGHT
     Dates: start: 20160310, end: 20191223
  19. VENTOLIN [Concomitant]
     Active Substance: ALBUTEROL SULFATE
     Dosage: AS DIRECTED
     Dates: start: 20190614
  20. OMEPRAZOLE. [Concomitant]
     Active Substance: OMEPRAZOLE
     Dates: start: 20191108

REACTIONS (2)
  - Hallucination [Recovered/Resolved]
  - Poor quality sleep [Recovered/Resolved]

NARRATIVE: CASE EVENT DATE: 20191223
